FAERS Safety Report 9216361 (Version 2)
Quarter: 2013Q2

REPORT INFORMATION
  Report Type: Spontaneous
  Country: CL (occurrence: CL)
  Receive Date: 20130408
  Receipt Date: 20130411
  Transmission Date: 20140414
  Serious: Yes (Disabling, Other)
  Sender: FDA-Public Use
  Company Number: PHHY2013CL033375

PATIENT
  Age: 70 Year
  Sex: Female

DRUGS (7)
  1. EXFORGE [Suspect]
     Indication: CONGESTIVE CARDIOMYOPATHY
     Dosage: 1 DF (320 MG VALS AND 10 MG AMLO), QD (ONCE A DAY IN THE MORNING)
     Route: 048
     Dates: start: 2009
  2. EXFORGE [Suspect]
     Indication: OFF LABEL USE
  3. FUROSEMIDE [Concomitant]
     Indication: FLUID RETENTION
     Dosage: 40 MG, BID
  4. ASPIRIN [Concomitant]
     Dosage: 100 MG, UNK
     Route: 048
  5. ATENOLOL [Concomitant]
     Dosage: 50 MG, BID
     Route: 048
  6. FAMOTIDIN [Concomitant]
     Dosage: UNK UKN, UNK
  7. ATORVASTATIN [Concomitant]
     Dosage: UNK UKN, UNK
     Dates: start: 2009

REACTIONS (5)
  - Atrophy [Not Recovered/Not Resolved]
  - Abasia [Not Recovered/Not Resolved]
  - Pain [Not Recovered/Not Resolved]
  - Varicose vein [Not Recovered/Not Resolved]
  - Gait disturbance [Unknown]
